FAERS Safety Report 9415055 (Version 1)
Quarter: 2013Q3

REPORT INFORMATION
  Report Type: Spontaneous
  Country: US (occurrence: US)
  Receive Date: 20130723
  Receipt Date: 20130723
  Transmission Date: 20140515
  Serious: Yes (Other)
  Sender: FDA-Public Use
  Company Number: US-ACTAVIS-2013-12735

PATIENT
  Age: 32 Year
  Sex: Female

DRUGS (9)
  1. FENTANYL (UNKNOWN) [Suspect]
     Indication: ANAESTHESIA PROCEDURE
     Dosage: 20 MCG BOLUS WIRH 5 MIN LOCKOUT AND A 300 MCG OVER 4 HOURS
     Route: 065
  2. LIDOCAINE HYDROCHLORIDE (WATSON LABORATORIES) [Suspect]
     Indication: PAIN
     Dosage: UNK
     Route: 062
  3. GABAPENTIN (UNKNOWN) [Suspect]
     Indication: PAIN
     Dosage: UNK
     Route: 065
  4. ACETAMINOPHEN (UNKNOWN) [Suspect]
     Indication: PAIN
     Dosage: UNK
     Route: 065
  5. HYDROMORPHONE HYDROCHLORIDE (UNKNOWN) [Suspect]
     Indication: PAIN
     Dosage: UNK
     Route: 065
  6. LAMIVUDINE-ZIDOVUDINE (UNKNOWN) [Suspect]
     Indication: HIV INFECTION
     Dosage: UNK
     Route: 065
  7. OXYTOCIN [Suspect]
     Indication: LABOUR STIMULATION
     Dosage: UNK
     Route: 065
  8. RITONAVIR [Suspect]
     Indication: HIV INFECTION
     Dosage: UNK
     Route: 065
  9. ATAZANAVIR [Suspect]
     Indication: HIV INFECTION
     Dosage: UNK
     Route: 065

REACTIONS (3)
  - Epidural lipomatosis [Unknown]
  - Respiratory depression [Unknown]
  - Maternal exposure during pregnancy [Recovered/Resolved]
